FAERS Safety Report 6432595 (Version 5)
Quarter: 2013Q1

REPORT INFORMATION
  Report Type: Spontaneous
  Country: US (occurrence: US)
  Receive Date: 20071002
  Receipt Date: 20130322
  Transmission Date: 20140127
  Serious: Yes (Life-Threatening, Hospitalization, Other)
  Sender: FDA-Public Use
  Company Number: US-RB-008158-07

PATIENT
  Age: 23 Year
  Sex: Female
  Weight: 41.4 kg

DRUGS (2)
  1. SUBOXONE [Suspect]
     Indication: DRUG DEPENDENCE
     Route: 060
     Dates: start: 20060628, end: 20070809
  2. SUBOXONE [Suspect]
     Indication: PAIN
     Route: 060
     Dates: start: 20070810

REACTIONS (4)
  - Exposure during pregnancy [Recovered/Resolved]
  - Ruptured ectopic pregnancy [Recovered/Resolved]
  - Road traffic accident [Recovered/Resolved]
  - Post-traumatic neck syndrome [Recovered/Resolved]
